FAERS Safety Report 5069222-3 (Version None)
Quarter: 2006Q3

REPORT INFORMATION
  Report Type: 
  Country: None (occurrence: None)
  Receive Date: 20060803
  Receipt Date: 20060712
  Transmission Date: 20061208
  Serious: Yes (Hospitalization)
  Sender: FDA-Public Use
  Company Number: PT-JNJFOC-20060702538

PATIENT
  Age: 6 Decade
  Sex: Male

DRUGS (4)
  1. REMICADE [Suspect]
     Indication: RHEUMATOID ARTHRITIS
     Route: 042
  2. METHOTREXATE [Concomitant]
     Route: 065
  3. METICORTEN [Concomitant]
     Route: 065
  4. ZURCAL [Concomitant]
     Route: 065

REACTIONS (2)
  - PNEUMONIA [None]
  - TUMOUR MARKER INCREASED [None]
